FAERS Safety Report 6251487-3 (Version None)
Quarter: 2009Q2

REPORT INFORMATION
  Report Type: 
  Country: None (occurrence: None)
  Receive Date: 20090630
  Receipt Date: 20090618
  Transmission Date: 20091009
  Serious: Yes (Hospitalization, Other)
  Sender: FDA-Public Use
  Company Number: PHHY2009JP20601

PATIENT
  Sex: Male
  Weight: 67 kg

DRUGS (11)
  1. DIOVAN [Suspect]
     Indication: HYPERTENSION
     Dosage: 80 MG DAILY
     Route: 048
     Dates: start: 20081120, end: 20090508
  2. PLAVIX [Suspect]
  3. MEXITIL [Suspect]
  4. CRESTOR [Concomitant]
  5. MAGLAX [Concomitant]
  6. MUCOSTA [Concomitant]
  7. PARIET [Concomitant]
  8. DEPAS [Concomitant]
  9. ASPIRIN [Concomitant]
  10. LASIX [Concomitant]
  11. ZYLORIC [Concomitant]

REACTIONS (8)
  - CELL MARKER INCREASED [None]
  - COUGH [None]
  - DYSPNOEA EXERTIONAL [None]
  - ELECTROCARDIOGRAM ST SEGMENT ELEVATION [None]
  - INTERSTITIAL LUNG DISEASE [None]
  - LUNG DISORDER [None]
  - SUPRAVENTRICULAR EXTRASYSTOLES [None]
  - VENTRICULAR EXTRASYSTOLES [None]
